FAERS Safety Report 8246953-5 (Version None)
Quarter: 2012Q1

REPORT INFORMATION
  Report Type: 
  Country: None (occurrence: None)
  Receive Date: 20120327
  Receipt Date: 20120314
  Transmission Date: 20120608
  Serious: Yes (Other)
  Sender: FDA-Public Use
  Company Number: JP-20120016

PATIENT
  Age: 61 Year
  Sex: Female

DRUGS (2)
  1. (BUCRYATE) (A-CYANOACRYLATE-MONOMER) [Suspect]
     Indication: SCLEROTHERAPY
     Dosage: 3.5 ML (3.5 ML, 1 IN 1 D)
  2. 10ML (LIPIODAL ULTRA FLUIDE) (ETHIODIZED OIL) [Suspect]
     Indication: SCLEROTHERAPY

REACTIONS (4)
  - RETROPERITONEAL ABSCESS [None]
  - DECREASED APPETITE [None]
  - ASCITES [None]
  - OFF LABEL USE [None]
